FAERS Safety Report 6263426-X (Version None)
Quarter: 2009Q3

REPORT INFORMATION
  Report Type: 
  Country: None (occurrence: None)
  Receive Date: 20090710
  Receipt Date: 20090116
  Transmission Date: 20100115
  Serious: No
  Sender: FDA-Public Use
  Company Number: A0763949A

PATIENT
  Age: 10 Year
  Sex: Female

DRUGS (6)
  1. FLOVENT [Suspect]
     Indication: ASTHMA
     Dosage: 2PUFF TWICE PER DAY
     Route: 055
     Dates: start: 19970801, end: 20000101
  2. SEREVENT [Suspect]
     Indication: ASTHMA
     Dosage: 2SPR TWICE PER DAY
     Route: 055
     Dates: start: 19970801, end: 20000101
  3. NASACORT [Concomitant]
  4. POLYHISTINE D [Concomitant]
  5. PROVENTIL-HFA [Concomitant]
  6. ALBUTEROL [Concomitant]

REACTIONS (2)
  - ALOPECIA [None]
  - GROWTH RETARDATION [None]
